FAERS Safety Report 21449104 (Version 1)
Quarter: 2022Q4

REPORT INFORMATION
  Report Type: Spontaneous
  Country: US (occurrence: US)
  Receive Date: 20221013
  Receipt Date: 20221013
  Transmission Date: 20230113
  Serious: No
  Sender: FDA-Public Use
  Company Number: US-BIOGEN-2022BI01161218

PATIENT
  Sex: Female

DRUGS (2)
  1. PLEGRIDY [Suspect]
     Active Substance: PEGINTERFERON BETA-1A
     Indication: Product used for unknown indication
     Route: 050
     Dates: end: 202205
  2. PLEGRIDY [Suspect]
     Active Substance: PEGINTERFERON BETA-1A

REACTIONS (4)
  - Laryngeal stenosis [Unknown]
  - Dyspnoea [Unknown]
  - Dysphonia [Unknown]
  - Tracheal stenosis [Unknown]
